FAERS Safety Report 18438775 (Version 1)
Quarter: 2020Q4

REPORT INFORMATION
  Report Type: Spontaneous
  Country: DE (occurrence: DE)
  Receive Date: 20201028
  Receipt Date: 20201028
  Transmission Date: 20210114
  Serious: Yes (Hospitalization, Other)
  Sender: FDA-Public Use
  Company Number: DE-ASTRAZENECA-2020SF40449

PATIENT
  Age: 69 Year
  Sex: Female

DRUGS (17)
  1. ATORVASTATIN [Concomitant]
     Active Substance: ATORVASTATIN
     Dosage: 60 DAILY
     Route: 065
  2. PANTOPRAZOLE [Concomitant]
     Active Substance: PANTOPRAZOLE
     Dosage: 40 DAILY
     Route: 065
  3. METOPROLOL. [Concomitant]
     Active Substance: METOPROLOL
     Dosage: 95 TWO TIMES DAILY
     Route: 065
  4. ATORVASTATIN [Concomitant]
     Active Substance: ATORVASTATIN
     Dosage: 40 DAILY
     Route: 065
  5. METOPROLOL. [Concomitant]
     Active Substance: METOPROLOL
     Dosage: 47.5 TWO TIMES DAILY
     Route: 065
  6. EZETIMIB [Concomitant]
     Active Substance: EZETIMIBE
     Dosage: 10 DAILY
     Route: 065
  7. AMLODIPINE [Concomitant]
     Active Substance: AMLODIPINE BESYLATE
     Dosage: 5 DAILY
     Route: 065
  8. L-THYROXIN [Concomitant]
     Active Substance: LEVOTHYROXINE SODIUM
     Route: 065
  9. CANDESARTAN. [Suspect]
     Active Substance: CANDESARTAN
     Dosage: 16.0MG UNKNOWN
     Route: 048
  10. TICAGRELOR. [Suspect]
     Active Substance: TICAGRELOR
     Route: 048
  11. DICLOFENAC [Concomitant]
     Active Substance: DICLOFENAC
     Dosage: 75.0MG AS REQUIRED
     Route: 065
  12. PANTOPRAZOLE [Concomitant]
     Active Substance: PANTOPRAZOLE
     Dosage: 20 DAILY
     Route: 065
  13. EMPAGLIFLOZIN [Concomitant]
     Active Substance: EMPAGLIFLOZIN
     Route: 065
  14. ASA [Concomitant]
     Active Substance: ASPIRIN
     Dosage: 100 TWO TIMES DAILY
     Route: 065
  15. ASA [Concomitant]
     Active Substance: ASPIRIN
     Dosage: 100 DAILY
     Route: 065
  16. METOPROLOL. [Concomitant]
     Active Substance: METOPROLOL
     Dosage: 47.5 THREE TIMES DAILY
     Route: 065
  17. CANDESARTAN. [Suspect]
     Active Substance: CANDESARTAN
     Dosage: 16.0MG UNKNOWN
     Route: 048

REACTIONS (8)
  - Chest pain [Unknown]
  - Blood pressure increased [Unknown]
  - Dyspnoea exertional [Unknown]
  - Acute coronary syndrome [Unknown]
  - Glucose tolerance impaired [Unknown]
  - Angina pectoris [Unknown]
  - Acute myocardial infarction [Unknown]
  - Low density lipoprotein increased [Recovering/Resolving]
